FAERS Safety Report 24968754 (Version 1)
Quarter: 2025Q1

REPORT INFORMATION
  Report Type: Report from Study
  Country: US (occurrence: US)
  Receive Date: 20250214
  Receipt Date: 20250214
  Transmission Date: 20250409
  Serious: No
  Sender: AMNEAL
  Company Number: US-AMNEAL PHARMACEUTICALS-2024-AMRX-01989

PATIENT
  Sex: Female

DRUGS (11)
  1. CARBIDOPA\LEVODOPA [Suspect]
     Active Substance: CARBIDOPA\LEVODOPA
     Indication: Parkinson^s disease
     Dosage: 23.75/95 MG, 3 CAPSULES, TID
     Route: 048
     Dates: start: 20240307
  2. BIOTIN [Concomitant]
     Active Substance: BIOTIN
     Indication: Product used for unknown indication
     Route: 065
     Dates: start: 20230228
  3. CENTRUM CONTROL [Concomitant]
     Indication: Product used for unknown indication
     Route: 065
     Dates: start: 20230228
  4. EZETIMIBE [Concomitant]
     Active Substance: EZETIMIBE
     Indication: Product used for unknown indication
     Dosage: 10 MG, 1 TABLETS, QD
     Route: 048
     Dates: start: 20221108
  5. LISINOPRIL [Concomitant]
     Active Substance: LISINOPRIL
     Indication: Product used for unknown indication
     Dosage: 10 MG, 1 TABLETS, 2 /DAY
     Route: 048
     Dates: start: 20221108
  6. METFORMIN [Concomitant]
     Active Substance: METFORMIN HYDROCHLORIDE
     Indication: Product used for unknown indication
     Dosage: 850 MG, 1 TABLETS, 2 /DAY
     Route: 048
     Dates: start: 20221108
  7. FISH OIL [Concomitant]
     Active Substance: FISH OIL
     Indication: Product used for unknown indication
     Route: 048
     Dates: start: 20230228
  8. ROSUVASTATIN [Concomitant]
     Active Substance: ROSUVASTATIN
     Indication: Product used for unknown indication
     Dosage: 20 MG, 1 TABLETS, 1 /DAY
     Route: 048
     Dates: start: 20221108
  9. TRAMADOL [Concomitant]
     Active Substance: TRAMADOL
     Indication: Pain
     Route: 048
     Dates: start: 20230124
  10. VENLAFAXINE [Concomitant]
     Active Substance: VENLAFAXINE HYDROCHLORIDE
     Indication: Product used for unknown indication
     Dosage: 3.75 MG, 1 TABLETS, 2 /DAY
     Route: 048
     Dates: start: 20230404
  11. VITAMIN D3 [Concomitant]
     Active Substance: CHOLECALCIFEROL
     Indication: Product used for unknown indication
     Route: 065
     Dates: start: 20230228

REACTIONS (15)
  - Tremor [Unknown]
  - Hypoaesthesia [Unknown]
  - Fatigue [Unknown]
  - Back pain [Unknown]
  - Gait disturbance [Unknown]
  - Paraesthesia [Unknown]
  - Resting tremor [Unknown]
  - Hypertonia [Unknown]
  - Reflexes abnormal [Unknown]
  - Coordination abnormal [Unknown]
  - Movement disorder [Unknown]
  - Parkinsonian rest tremor [Unknown]
  - Arthritis [Unknown]
  - Headache [Recovered/Resolved]
  - Product substitution issue [Unknown]
